FAERS Safety Report 6936437-6 (Version None)
Quarter: 2010Q3

REPORT INFORMATION
  Report Type: 
  Country: None (occurrence: None)
  Receive Date: 20100823
  Receipt Date: 20100813
  Transmission Date: 20110219
  Serious: Yes (Other)
  Sender: FDA-Public Use
  Company Number: AU-EISAI INC.-E3810-04002-SPO-AU

PATIENT
  Sex: Female
  Weight: 50 kg

DRUGS (2)
  1. PARIET (RABEPRAZOLE) [Suspect]
     Route: 048
     Dates: start: 20100426
  2. MICARDIS [Concomitant]
     Indication: HYPERTENSION
     Dosage: 40-80MG
     Dates: start: 20091202

REACTIONS (2)
  - RENAL FAILURE [None]
  - TUBULOINTERSTITIAL NEPHRITIS [None]
